FAERS Safety Report 7353728-8 (Version None)
Quarter: 2011Q1

REPORT INFORMATION
  Report Type: 
  Country: None (occurrence: None)
  Receive Date: 20110315
  Receipt Date: 20110314
  Transmission Date: 20110831
  Serious: Yes (Other)
  Sender: FDA-Public Use
  Company Number: US-ABBOTT-11P-163-0709990-00

PATIENT
  Sex: Female
  Weight: 96.248 kg

DRUGS (9)
  1. PREDNISONE [Concomitant]
     Indication: CROHN'S DISEASE
  2. HYDROCHLOROTHIAZIDE [Concomitant]
     Indication: HYPERTENSION
  3. HUMIRA [Suspect]
     Indication: CROHN'S DISEASE
     Dates: start: 20090501
  4. POTASSIUM [Concomitant]
     Indication: BLOOD POTASSIUM DECREASED
  5. IMURAN [Concomitant]
     Indication: CROHN'S DISEASE
  6. PREVACID [Concomitant]
     Indication: CROHN'S DISEASE
  7. METOPROLOL [Concomitant]
     Indication: HYPERTENSION
  8. CANASA [Concomitant]
     Indication: CROHN'S DISEASE
     Dosage: AT BEDTIME DAILY
  9. MULTI-VITAMIN [Concomitant]
     Indication: PRODUCT USED FOR UNKNOWN INDICATION

REACTIONS (2)
  - COUGH [None]
  - ANAL STENOSIS [None]
